FAERS Safety Report 20986555 (Version 1)
Quarter: 2022Q2

REPORT INFORMATION
  Report Type: 
  Country: US (occurrence: US)
  Receive Date: 20220621
  Receipt Date: 20220621
  Transmission Date: 20220720
  Serious: No
  Sender: FDA-Public Use
  Company Number: US-C B Fleet Co Inc-202203-US-001043

PATIENT
  Sex: Female

DRUGS (3)
  1. NIX [Suspect]
     Active Substance: PERMETHRIN
     Indication: Lice infestation
     Dosage: USED 2 APPLICATIONS 9 DAYS APART.
     Route: 061
  2. ROSEMARY [Suspect]
     Active Substance: ROSEMARY
  3. TEA TREE OIL [Suspect]
     Active Substance: TEA TREE OIL

REACTIONS (3)
  - Hypersensitivity [Not Recovered/Not Resolved]
  - Vomiting [Not Recovered/Not Resolved]
  - Nausea [Not Recovered/Not Resolved]
